FAERS Safety Report 8201538-1 (Version None)
Quarter: 2012Q1

REPORT INFORMATION
  Report Type: 
  Country: None (occurrence: None)
  Receive Date: 20120312
  Receipt Date: 20120223
  Transmission Date: 20120608
  Serious: Yes (Other)
  Sender: FDA-Public Use
  Company Number: JP-GLAXOSMITHKLINE-B0784667A

PATIENT
  Sex: Female

DRUGS (5)
  1. LEVOFLOXACIN [Concomitant]
     Dosage: 250MG PER DAY
     Route: 048
     Dates: start: 20111124, end: 20111222
  2. LAMICTAL [Suspect]
     Dosage: 50MG PER DAY
     Route: 048
     Dates: start: 20111217, end: 20120103
  3. UNASYN [Concomitant]
     Dosage: 1125MG PER DAY
     Route: 048
     Dates: start: 20111108, end: 20111113
  4. LAMICTAL [Suspect]
     Indication: DEPRESSION
     Dosage: 25MG PER DAY
     Route: 048
     Dates: start: 20111202, end: 20111216
  5. PLAVIX [Concomitant]
     Dosage: 75MG PER DAY
     Route: 048
     Dates: start: 20111101, end: 20120103

REACTIONS (7)
  - EOSINOPHIL COUNT INCREASED [None]
  - TOXIC SKIN ERUPTION [None]
  - DRUG ERUPTION [None]
  - WHITE BLOOD CELL COUNT DECREASED [None]
  - CANDIDIASIS [None]
  - RASH GENERALISED [None]
  - ERYTHEMA [None]
